FAERS Safety Report 9205220 (Version 1)
Quarter: 2013Q2

REPORT INFORMATION
  Report Type: Spontaneous
  Country: US (occurrence: US)
  Receive Date: 20130402
  Receipt Date: 20130402
  Transmission Date: 20140414
  Serious: Yes (Other)
  Sender: FDA-Public Use
  Company Number: PHHY2013US030355

PATIENT
  Age: 69 Year
  Sex: Female

DRUGS (20)
  1. DIGOXIN [Suspect]
  2. DABIGATRAN [Interacting]
     Indication: ATRIAL FIBRILLATION
     Dosage: 150 MG, BID
     Route: 048
     Dates: start: 2007
  3. ASPIRIN [Concomitant]
  4. DILTIAZEM [Concomitant]
  5. METOPROLOL TARTRATE [Concomitant]
  6. LISINOPRIL [Concomitant]
  7. FUROSEMIDE [Concomitant]
  8. POTASSIUM CHLORIDE [Concomitant]
  9. METFORMIN [Concomitant]
  10. GLIMEPIRIDE [Concomitant]
  11. BASAL-BOLUS INSULIN [Concomitant]
  12. LEVOTHYROXINE [Concomitant]
  13. OMEPRAZOLE [Concomitant]
  14. GEMFIBROZIL [Concomitant]
  15. FISH OIL [Concomitant]
  16. ALBUTEROL [Concomitant]
  17. DULOXETINE [Concomitant]
  18. CELECOXIB [Concomitant]
  19. VITAMIN D3 [Concomitant]
  20. LORAZEPAM [Concomitant]

REACTIONS (2)
  - Drug level increased [Unknown]
  - Drug interaction [Unknown]
